FAERS Safety Report 7985464-9 (Version None)
Quarter: 2011Q4

REPORT INFORMATION
  Report Type: 
  Country: None (occurrence: None)
  Receive Date: 20111216
  Receipt Date: 20111207
  Transmission Date: 20120403
  Serious: Yes (Other)
  Sender: FDA-Public Use
  Company Number: US-BAYER-2011-120048

PATIENT
  Age: 23 Year
  Sex: Male
  Weight: 79.365 kg

DRUGS (1)
  1. BAYER EXTRA STRENGTH BACK + BODY PAIN [Suspect]
     Indication: TOOTHACHE
     Dosage: 2 DF, UNK, BOTTLE COUNT 100S
     Route: 048
     Dates: start: 20111206, end: 20111207

REACTIONS (3)
  - TINNITUS [None]
  - HYPOACUSIS [None]
  - HEARING IMPAIRED [None]
